FAERS Safety Report 5750092-2 (Version None)
Quarter: 2008Q2

REPORT INFORMATION
  Report Type: 
  Country: None (occurrence: None)
  Receive Date: 20080527
  Receipt Date: 20080515
  Transmission Date: 20081010
  Serious: Yes (Hospitalization, Other)
  Sender: FDA-Public Use
  Company Number: DE-PFIZER INC-2008032871

PATIENT
  Sex: Male

DRUGS (2)
  1. INSPRA [Suspect]
     Route: 048
  2. ASPIRIN [Suspect]
     Route: 048

REACTIONS (4)
  - CATHETER THROMBOSIS [None]
  - HAEMATURIA [None]
  - HYPERKALAEMIA [None]
  - RENAL FAILURE [None]
